FAERS Safety Report 11944256 (Version 1)
Quarter: 2016Q1

REPORT INFORMATION
  Report Type: Spontaneous
  Country: US (occurrence: US)
  Receive Date: 20160125
  Receipt Date: 20160125
  Transmission Date: 20160526
  Serious: Yes (Hospitalization)
  Sender: FDA-Public Use
  Company Number: US-UNITED THERAPEUTICS-UNT-2015-013561

PATIENT
  Age: 70 Year
  Sex: Male
  Weight: 70.3 kg

DRUGS (3)
  1. REMODULIN [Suspect]
     Active Substance: TREPROSTINIL
     Indication: PULMONARY ARTERIAL HYPERTENSION
     Dosage: 0.04 ?G/KG, CONTINUING
     Route: 041
     Dates: start: 20140220
  2. OXYGEN. [Concomitant]
     Active Substance: OXYGEN
     Indication: PRODUCT USED FOR UNKNOWN INDICATION
  3. REMODULIN [Suspect]
     Active Substance: TREPROSTINIL
     Dosage: 0.022 ?G/KG, CONTINUING
     Route: 041

REACTIONS (12)
  - Cough [Unknown]
  - Diarrhoea [Recovering/Resolving]
  - Epistaxis [Unknown]
  - Chest discomfort [Unknown]
  - Device issue [Unknown]
  - Walking distance test abnormal [Unknown]
  - Exercise tolerance decreased [Unknown]
  - Dyspnoea [Unknown]
  - Pain in extremity [Unknown]
  - Hypopnoea [Unknown]
  - Nasal dryness [Unknown]
  - Palmar erythema [Recovered/Resolved]

NARRATIVE: CASE EVENT DATE: 201510
